FAERS Safety Report 18987046 (Version 1)
Quarter: 2021Q1

REPORT INFORMATION
  Report Type: Other
  Country: CA (occurrence: CA)
  Receive Date: 20210309
  Receipt Date: 20210309
  Transmission Date: 20210420
  Serious: Yes (Other)
  Sender: FDA-Public Use
  Company Number: CA-GE HEALTHCARE LIFE SCIENCES-2021CSU001095

PATIENT

DRUGS (2)
  1. OMNIPAQUE [Suspect]
     Active Substance: IOHEXOL
     Indication: PRODUCT USED FOR UNKNOWN INDICATION
  2. OMNIPAQUE [Suspect]
     Active Substance: IOHEXOL
     Indication: DIAGNOSTIC PROCEDURE
     Dosage: 50.0 UNITS ONCE
     Route: 050

REACTIONS (7)
  - Nausea [Unknown]
  - Contrast media reaction [Unknown]
  - Unresponsive to stimuli [Unknown]
  - Sneezing [Unknown]
  - Malaise [Unknown]
  - Confusional state [Unknown]
  - Dyspnoea [Unknown]
